FAERS Safety Report 6695187-4 (Version None)
Quarter: 2010Q2

REPORT INFORMATION
  Report Type: 
  Country: None (occurrence: None)
  Receive Date: 20100423
  Receipt Date: 20100413
  Transmission Date: 20101027
  Serious: Yes (Other)
  Sender: FDA-Public Use
  Company Number: ES-WATSON-2010-05051

PATIENT
  Age: 12 Year
  Sex: Male

DRUGS (1)
  1. TOPIRAMATE [Suspect]
     Indication: MIGRAINE PROPHYLAXIS
     Dosage: 25-50 MG EVERY 12 HOURS
     Route: 048

REACTIONS (2)
  - INTRACRANIAL HYPOTENSION [None]
  - MIGRAINE [None]
